FAERS Safety Report 7748772-2 (Version None)
Quarter: 2011Q3

REPORT INFORMATION
  Report Type: 
  Country: None (occurrence: None)
  Receive Date: 20110913
  Receipt Date: 20110913
  Transmission Date: 20111222
  Serious: Yes (Other)
  Sender: FDA-Public Use
  Company Number: None

PATIENT
  Sex: Female
  Weight: 11.3 kg

DRUGS (2)
  1. TRILEPTAL [Suspect]
     Indication: EPILEPSY
     Dosage: 2.5 ML TID PO
     Route: 048
     Dates: start: 20090601
  2. TRILEPTAL [Suspect]
     Indication: CEREBRAL PALSY
     Dosage: 2.5 ML TID PO
     Route: 048
     Dates: start: 20090601

REACTIONS (1)
  - CONVULSION [None]
